FAERS Safety Report 7676747-0 (Version None)
Quarter: 2011Q3

REPORT INFORMATION
  Report Type: 
  Country: None (occurrence: None)
  Receive Date: 20110811
  Receipt Date: 20110801
  Transmission Date: 20111222
  Serious: Yes (Other)
  Sender: FDA-Public Use
  Company Number: US-SANOFI-AVENTIS-2011SA049493

PATIENT
  Age: 31 Year
  Sex: Female

DRUGS (1)
  1. LEFLUNOMIDE [Suspect]
     Indication: BK VIRUS INFECTION
     Route: 065

REACTIONS (4)
  - HEPATIC FAILURE [None]
  - ASCITES [None]
  - FATIGUE [None]
  - JAUNDICE [None]
